FAERS Safety Report 4990364-2 (Version None)
Quarter: 2006Q2

REPORT INFORMATION
  Report Type: 
  Country: None (occurrence: None)
  Receive Date: 20060427
  Receipt Date: 20060413
  Transmission Date: 20061013
  Serious: Yes (Hospitalization, Other)
  Sender: FDA-Public Use
  Company Number: GBWYE339527JAN06

PATIENT
  Age: 72 Year
  Sex: Male

DRUGS (11)
  1. RAPAMUNE [Suspect]
     Indication: RENAL TRANSPLANT
     Dosage: 3 MG 1X PER 1 DAY, ORAL
     Route: 048
     Dates: start: 20050419
  2. MYCOPHENOLATE MOFETIL [Concomitant]
  3. PREDNISOLONE [Concomitant]
  4. COTRIM [Concomitant]
  5. FELODIPINE [Concomitant]
  6. TAMSULOSIN HCL [Concomitant]
  7. ALFACALCIDOL (ALFACALCIDOL) [Concomitant]
  8. LOPERAMIDE HCL [Concomitant]
  9. ASPIRIN [Concomitant]
  10. ACETAMINOPHEN [Concomitant]
  11. CODEINE PHOSPHATE (CODEINE PHOSPHATE) [Concomitant]

REACTIONS (2)
  - EPSTEIN-BARR VIRUS INFECTION [None]
  - PYREXIA [None]
